FAERS Safety Report 4745059-7 (Version None)
Quarter: 2005Q3

REPORT INFORMATION
  Report Type: 
  Country: None (occurrence: None)
  Receive Date: 20050812
  Receipt Date: 20050805
  Transmission Date: 20060218
  Serious: Yes (Hospitalization)
  Sender: FDA-Public Use
  Company Number: J081-002-002030

PATIENT
  Age: 73 Year
  Sex: Female

DRUGS (2)
  1. ARICEPT [Suspect]
     Indication: DEMENTIA ALZHEIMER'S TYPE
     Dosage: SEE  IMAGE
     Route: 048
     Dates: start: 20050606, end: 20050619
  2. ARICEPT [Suspect]
     Indication: DEMENTIA ALZHEIMER'S TYPE
     Dosage: SEE  IMAGE
     Route: 048
     Dates: start: 20050620, end: 20050719

REACTIONS (1)
  - RHABDOMYOLYSIS [None]
